APPROVED DRUG PRODUCT: TIMOLIDE 10-25
Active Ingredient: HYDROCHLOROTHIAZIDE; TIMOLOL MALEATE
Strength: 25MG;10MG
Dosage Form/Route: TABLET;ORAL
Application: N018061 | Product #001
Applicant: MERCK AND CO INC
Approved: Approved Prior to Jan 1, 1982 | RLD: No | RS: No | Type: DISCN